FAERS Safety Report 4479787-8 (Version None)
Quarter: 2004Q4

REPORT INFORMATION
  Report Type: 
  Country: None (occurrence: None)
  Receive Date: 20041020
  Receipt Date: 20041018
  Transmission Date: 20050328
  Serious: Yes (Hospitalization)
  Sender: FDA-Public Use
  Company Number: PHBS2004IT13787

PATIENT
  Age: 49 Year
  Sex: Female

DRUGS (2)
  1. GLEEVEC [Suspect]
     Indication: CHRONIC MYELOID LEUKAEMIA
     Dosage: 100 MG, QID
     Route: 048
     Dates: start: 20030714, end: 20041001
  2. CONTRACEPTIVES UNS [Concomitant]

REACTIONS (1)
  - CEREBRAL ISCHAEMIA [None]
